FAERS Safety Report 5503757-1 (Version None)
Quarter: 2007Q4

REPORT INFORMATION
  Report Type: 
  Country: None (occurrence: None)
  Receive Date: 20071030
  Receipt Date: 20071030
  Transmission Date: 20080405
  Serious: Yes (Life-Threatening, Hospitalization)
  Sender: FDA-Public Use
  Company Number: None

PATIENT
  Age: 35 Year
  Sex: Female
  Weight: 52.1637 kg

DRUGS (2)
  1. CYMBALTA [Suspect]
     Indication: DEPRESSION
     Dosage: 40 MG  ONCE A DAY  PO
     Route: 048
     Dates: start: 20071008, end: 20071017
  2. PROZAC [Suspect]
     Indication: DEPRESSION
     Dosage: 30 MG  ONCE A DAY  PO
     Route: 048

REACTIONS (4)
  - ABNORMAL BEHAVIOUR [None]
  - IMPAIRED WORK ABILITY [None]
  - SOMNOLENCE [None]
  - THINKING ABNORMAL [None]
